FAERS Safety Report 4391982-5 (Version None)
Quarter: 2004Q3

REPORT INFORMATION
  Report Type: 
  Country: None (occurrence: None)
  Receive Date: 20040701
  Receipt Date: 20040616
  Transmission Date: 20050211
  Serious: Yes (Hospitalization)
  Sender: FDA-Public Use
  Company Number: B0335849A

PATIENT
  Age: 29 Year
  Sex: Male

DRUGS (4)
  1. WELLBUTRIN SR [Suspect]
     Indication: OVERDOSE
     Dosage: ORAL
     Route: 048
  2. ZIPRASIDONE HCL UNSPECIFIED TABLET (ZIPRASIDONE HCL) [Suspect]
     Indication: OVERDOSE
     Dosage: ORAL
     Route: 048
  3. SEMISODIUM VALPROATE TABLET (DIVALPROEX SODIUM) [Suspect]
     Indication: OVERDOSE
     Dosage: ORAL
     Route: 048
  4. FLUOXETINE [Suspect]
     Indication: OVERDOSE
     Dosage: ORAL
     Route: 048

REACTIONS (12)
  - ATRIAL FIBRILLATION [None]
  - BUNDLE BRANCH BLOCK LEFT [None]
  - DELIRIUM [None]
  - DISORIENTATION [None]
  - ELECTROCARDIOGRAM QT CORRECTED INTERVAL PROLONGED [None]
  - ELECTROCARDIOGRAM T WAVE ABNORMAL [None]
  - GRAND MAL CONVULSION [None]
  - HALLUCINATION, VISUAL [None]
  - LETHARGY [None]
  - MULTIPLE DRUG OVERDOSE [None]
  - SINUS TACHYCARDIA [None]
  - SUPRAVENTRICULAR TACHYCARDIA [None]
